FAERS Safety Report 18275729 (Version 1)
Quarter: 2020Q3

REPORT INFORMATION
  Report Type: Spontaneous
  Country: US (occurrence: US)
  Receive Date: 20200917
  Receipt Date: 20200917
  Transmission Date: 20201103
  Serious: No
  Sender: FDA-Public Use
  Company Number: US-STRIDES ARCOLAB LIMITED-2020SP001444

PATIENT
  Age: 62 Year
  Sex: Female

DRUGS (2)
  1. ACARBOSE. [Suspect]
     Active Substance: ACARBOSE
     Indication: HYPOTENSION
     Dosage: 50 MILLIGRAM, EACH MEAL
     Route: 065
  2. ACARBOSE. [Suspect]
     Active Substance: ACARBOSE
     Dosage: RAPIDLY TITRATING TO 100 MILLIGRAM AT MEAL TIME
     Route: 065

REACTIONS (1)
  - Off label use [Unknown]
